FAERS Safety Report 6163033-3 (Version None)
Quarter: 2009Q2

REPORT INFORMATION
  Report Type: 
  Country: None (occurrence: None)
  Receive Date: 20090421
  Receipt Date: 20090414
  Transmission Date: 20091009
  Serious: Yes (Other)
  Sender: FDA-Public Use
  Company Number: US-JNJCH-2009009769

PATIENT
  Age: 51 Year
  Sex: Male
  Weight: 89.4 kg

DRUGS (1)
  1. LISTERMINT [Suspect]
     Indication: DENTAL DISORDER PROPHYLAXIS
     Dosage: TEXT:1 MOUTHFUL TWICE DAILY
     Route: 048

REACTIONS (4)
  - DIZZINESS [None]
  - MALAISE [None]
  - PRODUCT QUALITY ISSUE [None]
  - PRODUCT TAMPERING [None]
